FAERS Safety Report 20540982 (Version 1)
Quarter: 2022Q1

REPORT INFORMATION
  Report Type: Report from Study
  Country: US (occurrence: US)
  Receive Date: 20220302
  Receipt Date: 20220302
  Transmission Date: 20220423
  Serious: Yes (Other)
  Sender: FDA-Public Use
  Company Number: US-BAYER-2022A027116

PATIENT
  Sex: Male

DRUGS (2)
  1. STIVARGA [Suspect]
     Active Substance: REGORAFENIB
     Indication: Rectal cancer
     Dosage: 160 MG, QD ON DAYS 1-21 OF EACH 28 DAY CYCLE WITH A LOW FAT BREAKFAST
     Route: 048
     Dates: start: 20210811
  2. STIVARGA [Suspect]
     Active Substance: REGORAFENIB
     Indication: Rectal cancer
     Dosage: 120 MG, QD
     Route: 048

REACTIONS (7)
  - Musculoskeletal disorder [Not Recovered/Not Resolved]
  - Movement disorder [None]
  - Gait disturbance [None]
  - Memory impairment [Not Recovered/Not Resolved]
  - Blister [None]
  - Abdominal pain upper [Not Recovered/Not Resolved]
  - Dry skin [None]
